FAERS Safety Report 8907945 (Version 1)
Quarter: 2012Q4

REPORT INFORMATION
  Report Type: 
  Country: US (occurrence: US)
  Receive Date: 20121114
  Receipt Date: 20121114
  Transmission Date: 20130627
  Serious: No
  Sender: FDA-Public Use
  Company Number: US-009507513-1211USA005263

PATIENT
  Age: 25 Year
  Sex: Female
  Weight: 121.1 kg

DRUGS (1)
  1. SINGULAIR [Suspect]
     Route: 048

REACTIONS (1)
  - Rash [Unknown]
